FAERS Safety Report 9529518 (Version 2)
Quarter: 2013Q3

REPORT INFORMATION
  Report Type: Spontaneous
  Country: US (occurrence: US)
  Receive Date: 20130917
  Receipt Date: 20130917
  Transmission Date: 20140515
  Serious: Yes (Hospitalization, Disabling, Other)
  Sender: FDA-Public Use
  Company Number: US-009507513-0807USA05262

PATIENT
  Sex: Female

DRUGS (1)
  1. FOSAMAX [Suspect]
     Indication: OSTEOPOROSIS
     Dosage: 70 MG, QW
     Route: 048
     Dates: start: 200107, end: 200608

REACTIONS (19)
  - Osteonecrosis [Unknown]
  - Arthropathy [Unknown]
  - Ovarian cancer metastatic [Unknown]
  - Pancreatic carcinoma metastatic [Unknown]
  - Gastrointestinal cancer metastatic [Unknown]
  - Osteonecrosis of jaw [Unknown]
  - Bone loss [Not Recovered/Not Resolved]
  - Oral infection [Unknown]
  - Cataract [Unknown]
  - Device failure [Unknown]
  - Oral discomfort [Unknown]
  - Tooth disorder [Unknown]
  - Renal cyst [Unknown]
  - Atelectasis [Unknown]
  - Peroneal muscular atrophy [Unknown]
  - Intraocular lens implant [Unknown]
  - Cataract [Unknown]
  - Medical device implantation [Unknown]
  - Nausea [Unknown]
